FAERS Safety Report 25308462 (Version 2)
Quarter: 2025Q4

REPORT INFORMATION
  Report Type: Spontaneous
  Country: US (occurrence: US)
  Receive Date: 20250513
  Receipt Date: 20251106
  Transmission Date: 20260118
  Serious: No
  Sender: SANOFI AVENTIS
  Company Number: US-SA-2025SA135284

PATIENT
  Age: 7 Month
  Sex: Male

DRUGS (1)
  1. DUPIXENT [Suspect]
     Active Substance: DUPILUMAB
     Indication: Dermatitis atopic
     Dosage: 200 MG, Q4W
     Route: 058
     Dates: start: 202503

REACTIONS (3)
  - Ear infection [Unknown]
  - Hypersensitivity [Unknown]
  - Skin irritation [Unknown]

NARRATIVE: CASE EVENT DATE: 20250101
